FAERS Safety Report 23661235 (Version 5)
Quarter: 2024Q4

REPORT INFORMATION
  Report Type: Spontaneous
  Country: CA (occurrence: CA)
  Receive Date: 20240322
  Receipt Date: 20241014
  Transmission Date: 20250115
  Serious: Yes (Other)
  Sender: CELLTRION
  Company Number: CA-CELLTRION INC.-2024CA006402

PATIENT

DRUGS (2)
  1. YUFLYMA [Suspect]
     Active Substance: ADALIMUMAB-AATY
     Indication: Hidradenitis
     Dosage: 40 MG WEEKLY
     Route: 058
     Dates: start: 20240302
  2. YUFLYMA [Suspect]
     Active Substance: ADALIMUMAB-AATY
     Dosage: 40 MG WEEKLY
     Route: 058
     Dates: start: 20240425

REACTIONS (10)
  - Ligament sprain [Unknown]
  - Injection site mass [Unknown]
  - Neck pain [Unknown]
  - Contusion [Unknown]
  - Pain [Unknown]
  - Urinary tract infection [Not Recovered/Not Resolved]
  - Back pain [Unknown]
  - Intentional dose omission [Unknown]
  - Product dose omission issue [Unknown]
  - Therapy interrupted [Unknown]

NARRATIVE: CASE EVENT DATE: 20240302
